FAERS Safety Report 7912924-9 (Version None)
Quarter: 2011Q4

REPORT INFORMATION
  Report Type: 
  Country: None (occurrence: None)
  Receive Date: 20111114
  Receipt Date: 20111109
  Transmission Date: 20120403
  Serious: Yes (Other)
  Sender: FDA-Public Use
  Company Number: BR-PFIZER INC-2011258676

PATIENT
  Sex: Female
  Weight: 56.5 kg

DRUGS (10)
  1. VARENICLINE TARTRATE [Suspect]
     Indication: TOBACCO USER
     Dosage: UNK
     Route: 048
     Dates: start: 20100101, end: 20100101
  2. LIPITOR [Concomitant]
     Indication: BLOOD CHOLESTEROL INCREASED
     Dosage: 10 MG, 1X/DAY
     Dates: start: 20090101
  3. SOMALGIN CARDIO [Concomitant]
     Indication: ANGIOPATHY
     Dosage: 200 MG, 1X/DAY
     Dates: start: 20100101
  4. VARENICLINE TARTRATE [Suspect]
     Dosage: 0.5 MG, 1X/DAY
     Route: 048
     Dates: start: 20111020, end: 20110101
  5. VARENICLINE TARTRATE [Suspect]
     Dosage: 1 MG, 2X/DAY
     Route: 048
     Dates: start: 20110101, end: 20111107
  6. NEXIUM [Concomitant]
     Indication: GASTRITIS
     Dosage: 40 MG, 1X/DAY
     Dates: start: 20111022
  7. ATACAND [Concomitant]
     Indication: HYPERTENSION
     Dosage: 16 MG, 1X/DAY
     Dates: start: 19980101
  8. CEBRALAT [Concomitant]
     Indication: VEIN DISORDER
     Dosage: 100 MG, 2X/DAY
     Dates: start: 20100101
  9. ITRACONAZOLE [Concomitant]
     Indication: TINEA PEDIS
     Dosage: 200 MG, 1X/DAY (DURING 8 DAYS AND STOP FOR 21 DAYS)
     Dates: start: 20100101
  10. LIBIAM [Concomitant]
     Indication: HORMONE REPLACEMENT THERAPY
     Dosage: 2.5 MG, 1X/DAY
     Dates: start: 20080101

REACTIONS (14)
  - ERYTHEMA [None]
  - LACRIMATION INCREASED [None]
  - MEMORY IMPAIRMENT [None]
  - MENOPAUSE [None]
  - SOMNOLENCE [None]
  - EYE SWELLING [None]
  - ABDOMINAL DISCOMFORT [None]
  - PRURITUS [None]
  - OEDEMA PERIPHERAL [None]
  - DISTURBANCE IN ATTENTION [None]
  - HEADACHE [None]
  - MALAISE [None]
  - DEPRESSION [None]
  - ABDOMINAL PAIN [None]
